FAERS Safety Report 9004711 (Version 1)
Quarter: 2013Q1

REPORT INFORMATION
  Report Type: Spontaneous
  Country: US (occurrence: US)
  Receive Date: 20130109
  Receipt Date: 20130109
  Transmission Date: 20140127
  Serious: No
  Sender: FDA-Public Use
  Company Number: US-BAYER-2013-002640

PATIENT
  Age: 43 Year
  Sex: Male
  Weight: 127 kg

DRUGS (4)
  1. ALEVE SMOOTH GELS [Suspect]
     Indication: ARTHRITIS
  2. ALEVE SMOOTH GELS [Suspect]
     Indication: ARTHRITIS
     Dosage: 6 DF, UNK
     Dates: start: 20121228
  3. TRAMADOL [Concomitant]
     Dosage: UNK MG, UNK
     Route: 048
  4. HYDROXYCHLOROQUINE [Concomitant]

REACTIONS (1)
  - Overdose [None]
